FAERS Safety Report 18237506 (Version 1)
Quarter: 2020Q3

REPORT INFORMATION
  Report Type: Spontaneous
  Country: TR (occurrence: TR)
  Receive Date: 20200907
  Receipt Date: 20200907
  Transmission Date: 20201103
  Serious: Yes (Other)
  Sender: FDA-Public Use
  Company Number: TR-PFIZER INC-2020343591

PATIENT

DRUGS (1)
  1. PREGABALIN. [Suspect]
     Active Substance: PREGABALIN

REACTIONS (2)
  - Drug abuse [Unknown]
  - Drug dependence [Unknown]
